FAERS Safety Report 14937475 (Version 7)
Quarter: 2025Q1

REPORT INFORMATION
  Report Type: Report from Study
  Country: US (occurrence: US)
  Receive Date: 20180525
  Receipt Date: 20250313
  Transmission Date: 20250409
  Serious: Yes (Hospitalization, Other)
  Sender: ROCHE
  Company Number: US-ROCHE-1372728

PATIENT
  Age: 84 Year
  Sex: Female
  Weight: 48.08 kg

DRUGS (19)
  1. XOLAIR [Suspect]
     Active Substance: OMALIZUMAB
     Indication: Asthma
     Route: 058
     Dates: start: 20080514
  2. XOLAIR [Suspect]
     Active Substance: OMALIZUMAB
     Indication: Asthma
     Dosage: ONGOING- YES
     Route: 058
     Dates: start: 2010
  3. XOLAIR [Suspect]
     Active Substance: OMALIZUMAB
     Route: 058
     Dates: start: 2012, end: 20180513
  4. XOLAIR [Suspect]
     Active Substance: OMALIZUMAB
     Route: 058
     Dates: start: 20180213
  5. XOLAIR [Suspect]
     Active Substance: OMALIZUMAB
     Route: 058
  6. XOLAIR [Suspect]
     Active Substance: OMALIZUMAB
     Route: 058
  7. ALBUTEROL [Concomitant]
     Active Substance: ALBUTEROL
     Indication: Asthma
     Dates: start: 1991
  8. ALBUTEROL [Concomitant]
     Active Substance: ALBUTEROL
  9. ASPIRIN [Concomitant]
     Active Substance: ASPIRIN
     Dates: start: 2015
  10. FENOFIBRATE [Concomitant]
     Active Substance: FENOFIBRATE
  11. FISH OIL [Concomitant]
     Active Substance: FISH OIL
  12. LATANOPROST [Concomitant]
     Active Substance: LATANOPROST
  13. NITROGLYCERIN [Concomitant]
     Active Substance: NITROGLYCERIN
  14. PEPCID [Concomitant]
     Active Substance: FAMOTIDINE
  15. PLAVIX [Concomitant]
     Active Substance: CLOPIDOGREL BISULFATE
  16. QUININE [Concomitant]
     Active Substance: QUININE
  17. SYMBICORT [Concomitant]
     Active Substance: BUDESONIDE\FORMOTEROL FUMARATE DIHYDRATE
     Dosage: 160/4.5
     Dates: start: 2014
  18. ALPHAGAN P [Concomitant]
     Active Substance: BRIMONIDINE TARTRATE
     Dosage: 1 DROP BOTH EYES
  19. ALBUTEROL [Concomitant]
     Active Substance: ALBUTEROL
     Indication: Asthma

REACTIONS (32)
  - Heart rate increased [Unknown]
  - Hypoxia [Unknown]
  - Dizziness [Unknown]
  - Intermittent claudication [Unknown]
  - Hyperventilation [Unknown]
  - Sputum discoloured [Unknown]
  - Viral infection [Unknown]
  - Asthma [Unknown]
  - Joint swelling [Unknown]
  - Rheumatoid arthritis [Not Recovered/Not Resolved]
  - Skin cancer [Not Recovered/Not Resolved]
  - Hypoaesthesia [Unknown]
  - Dyspepsia [Not Recovered/Not Resolved]
  - Dyspnoea [Unknown]
  - Pain in extremity [Not Recovered/Not Resolved]
  - Dyspnoea [Recovering/Resolving]
  - Headache [Unknown]
  - Dysphagia [Unknown]
  - Osteoarthritis [Unknown]
  - Cardiac disorder [Unknown]
  - Intracranial mass [Unknown]
  - Choking [Unknown]
  - Squamous cell carcinoma of skin [Not Recovered/Not Resolved]
  - Basal cell carcinoma [Not Recovered/Not Resolved]
  - Tremor [Not Recovered/Not Resolved]
  - Cerebrovascular accident [Unknown]
  - Diverticulitis [Recovered/Resolved]
  - Nasal cavity mass [Unknown]
  - Macular degeneration [Unknown]
  - Fatigue [Not Recovered/Not Resolved]
  - Toothache [Not Recovered/Not Resolved]
  - Lung disorder [Unknown]

NARRATIVE: CASE EVENT DATE: 20110101
